FAERS Safety Report 20840711 (Version 7)
Quarter: 2023Q2

REPORT INFORMATION
  Report Type: Report from Study
  Country: US (occurrence: US)
  Receive Date: 20220517
  Receipt Date: 20230517
  Transmission Date: 20230721
  Serious: Yes (Other)
  Sender: FDA-Public Use
  Company Number: US-KYOWAKIRIN-2022BKK006494

PATIENT

DRUGS (1)
  1. MOGAMULIZUMAB [Suspect]
     Active Substance: MOGAMULIZUMAB
     Indication: Product used for unknown indication
     Dosage: 20 MG/5ML
     Route: 042

REACTIONS (11)
  - Diverticulitis [Unknown]
  - Neuropathy peripheral [Unknown]
  - Somnolence [Unknown]
  - Arthropathy [Unknown]
  - Poor venous access [Unknown]
  - Somnolence [Unknown]
  - Skin disorder [Recovering/Resolving]
  - Skin disorder [Unknown]
  - Fall [Unknown]
  - Diarrhoea [Recovered/Resolved]
  - Blood pressure systolic increased [Unknown]
